FAERS Safety Report 6567447-9 (Version None)
Quarter: 2010Q1

REPORT INFORMATION
  Report Type: 
  Country: None (occurrence: None)
  Receive Date: 20100202
  Receipt Date: 20100126
  Transmission Date: 20100710
  Serious: Yes (Other)
  Sender: FDA-Public Use
  Company Number: US-BAYER-201011109BCC

PATIENT
  Age: 57 Year
  Sex: Male
  Weight: 93 kg

DRUGS (7)
  1. ALKA SELTZER PLUS MUCUS + CONGESTION LIQUID GELS [Suspect]
     Indication: RHINORRHOEA
     Route: 048
     Dates: start: 20100124, end: 20100124
  2. ALKA SELTZER PLUS MUCUS + CONGESTION LIQUID GELS [Suspect]
     Route: 048
     Dates: start: 20100125, end: 20100125
  3. ALKA SELTZER PLUS MUCUS + CONGESTION LIQUID GELS [Suspect]
     Route: 048
     Dates: start: 20100126
  4. PRAVASTATIN [Concomitant]
     Route: 065
  5. ADVIL [Concomitant]
     Route: 065
  6. VITAMIN C [Concomitant]
     Route: 065
  7. RICOLA COUGH DROP [Concomitant]
     Route: 065

REACTIONS (5)
  - AGITATION [None]
  - ANXIETY [None]
  - MIDDLE INSOMNIA [None]
  - NASAL DRYNESS [None]
  - PARANOIA [None]
